FAERS Safety Report 9661600 (Version 2)
Quarter: 2013Q4

REPORT INFORMATION
  Report Type: Spontaneous
  Country: US (occurrence: US)
  Receive Date: 20131031
  Receipt Date: 20131031
  Transmission Date: 20140711
  Serious: No
  Sender: FDA-Public Use
  Company Number: US-PURDUE-USA-2010-0055182

PATIENT
  Age: 63 Year
  Sex: Female

DRUGS (3)
  1. OXYCONTIN (NDA 22-272) [Suspect]
     Indication: PAIN
     Dosage: 60 MG, TID
     Dates: start: 20101106
  2. OXYCONTIN (NDA 22-272) [Suspect]
     Dosage: 40 MG, TID
     Dates: start: 20101022
  3. OXYIR [Concomitant]
     Indication: BREAKTHROUGH PAIN
     Dosage: 5 MG, UNK

REACTIONS (12)
  - Medication residue present [Recovered/Resolved]
  - Foreign body [Recovered/Resolved]
  - Crying [Recovered/Resolved]
  - Pain [Recovered/Resolved]
  - Insomnia [Recovered/Resolved]
  - Somnolence [Recovered/Resolved]
  - Abdominal pain upper [Recovered/Resolved]
  - Constipation [Recovered/Resolved]
  - Headache [Recovered/Resolved]
  - Drug effect decreased [Recovered/Resolved]
  - Therapeutic response delayed [Recovered/Resolved]
  - Drug ineffective [Recovered/Resolved]
